FAERS Safety Report 12389174 (Version 2)
Quarter: 2016Q2

REPORT INFORMATION
  Report Type: Spontaneous
  Country: RS (occurrence: RS)
  Receive Date: 20160520
  Receipt Date: 20160530
  Transmission Date: 20160815
  Serious: Yes (Death)
  Sender: FDA-Public Use
  Company Number: RS-PFIZER INC-2016260031

PATIENT
  Age: 75 Year
  Sex: Male

DRUGS (2)
  1. SUTENT [Suspect]
     Active Substance: SUNITINIB MALATE
     Indication: METASTATIC RENAL CELL CARCINOMA
     Dosage: 50 MG, 1X/DAY, CYCLIC
     Route: 048
     Dates: start: 201511, end: 20160503
  2. VAZOTAL [Concomitant]
     Indication: HYPERTENSION
     Dosage: 5 MG, 1X/DAY, IN THE  EVENINING
     Route: 048
     Dates: start: 2013

REACTIONS (4)
  - Blood creatinine increased [Unknown]
  - Acute myocardial infarction [Fatal]
  - Diarrhoea [Unknown]
  - Fatigue [Unknown]

NARRATIVE: CASE EVENT DATE: 201604
